FAERS Safety Report 5692113-1 (Version None)
Quarter: 2008Q2

REPORT INFORMATION
  Report Type: 
  Country: None (occurrence: None)
  Receive Date: 20080402
  Receipt Date: 20080327
  Transmission Date: 20081010
  Serious: Yes (Hospitalization)
  Sender: FDA-Public Use
  Company Number: JP-PFIZER INC-2008005900

PATIENT
  Age: 33 Year
  Sex: Female

DRUGS (21)
  1. NELFINAVIR MESILATE [Suspect]
     Indication: HIV INFECTION
     Dosage: DAILY DOSE:2500MG-FREQ:INTERVAL: EVERYDAY
     Route: 048
     Dates: start: 20041029, end: 20050928
  2. NELFINAVIR MESILATE [Suspect]
     Dosage: DAILY DOSE:2500MG-FREQ:INTERVAL: EVERYDAY
     Route: 048
  3. NELFINAVIR MESILATE [Suspect]
     Dosage: DAILY DOSE:2500MG-FREQ:INTERVAL: EVERY DAY
     Route: 048
     Dates: start: 20060609, end: 20060912
  4. NELFINAVIR MESILATE [Suspect]
     Dosage: DAILY DOSE:2500MG-FREQ:INTERVAL: EVERY DAY
     Route: 048
  5. RETROVIR [Suspect]
     Indication: HIV INFECTION
     Dosage: DAILY DOSE:400MG-FREQ:INTERVAL: EVERYDAY
     Route: 048
     Dates: start: 20041029, end: 20050928
  6. RETROVIR [Suspect]
     Dates: start: 20050301, end: 20050301
  7. RETROVIR [Suspect]
     Dosage: DAILY DOSE:400MG-FREQ:INTERVAL: EVERYDAY
     Route: 048
  8. RETROVIR [Suspect]
     Dosage: DAILY DOSE:400MG-FREQ:INTERVAL
     Route: 048
     Dates: start: 20060609, end: 20060912
  9. RETROVIR [Suspect]
     Route: 042
     Dates: start: 20060913, end: 20060913
  10. RETROVIR [Suspect]
     Dosage: DAILY DOSE:400MG-FREQ:INTERVAL: EVERY DAY
     Route: 048
  11. EPIVIR [Suspect]
     Indication: HIV INFECTION
     Route: 048
     Dates: start: 20041029, end: 20050228
  12. EPIVIR [Suspect]
     Route: 048
  13. EPIVIR [Suspect]
     Route: 048
     Dates: start: 20060609, end: 20060912
  14. EPIVIR [Suspect]
     Route: 048
  15. FERROUS FUMARATE [Concomitant]
     Dates: start: 20041029, end: 20050228
  16. LOPERAMIDE HYDROCHLORIDE [Concomitant]
     Dates: start: 20041029, end: 20041104
  17. SULTAMICILLIN TOSILATE [Concomitant]
     Dates: start: 20041118, end: 20050120
  18. SERRAPEPTASE [Concomitant]
     Dates: start: 20041118, end: 20050120
  19. DEXTROMETHORPHAN HYDROBROMIDE [Concomitant]
     Dates: start: 20041118, end: 20050120
  20. AMPICILLIN [Concomitant]
     Dates: start: 20060913, end: 20060916
  21. GENTAMICIN SULFATE [Concomitant]
     Dates: start: 20060913, end: 20060916

REACTIONS (3)
  - DISSEMINATED INTRAVASCULAR COAGULATION [None]
  - PREMATURE RUPTURE OF MEMBRANES [None]
  - PULMONARY EMBOLISM [None]
